FAERS Safety Report 5048586-0 (Version None)
Quarter: 2006Q3

REPORT INFORMATION
  Report Type: 
  Country: None (occurrence: None)
  Receive Date: 20060705
  Receipt Date: 20060619
  Transmission Date: 20061208
  Serious: Yes (Hospitalization, Other)
  Sender: FDA-Public Use
  Company Number: DEWYE848928JUN06

PATIENT
  Age: 26 Year
  Sex: Female

DRUGS (6)
  1. VENLAFAXINE HCL [Suspect]
     Indication: ANXIETY
     Dosage: 37.5 MG PER DAY
     Route: 048
     Dates: start: 20051107
  2. VENLAFAXINE HCL [Suspect]
     Indication: DEPRESSION
     Dosage: 37.5 MG PER DAY
     Route: 048
     Dates: start: 20051107
  3. SOLIAN (AMISULPRIDE, , 0) [Suspect]
     Indication: PSYCHOTIC DISORDER
     Dosage: SEE IMAGE
     Route: 048
     Dates: end: 20051023
  4. SOLIAN (AMISULPRIDE, , 0) [Suspect]
     Indication: PSYCHOTIC DISORDER
     Dosage: SEE IMAGE
     Route: 048
     Dates: start: 20051024
  5. TRUXAL (CHLORPROTHIXENE HYDROCHLORIDE) [Concomitant]
  6. TEGRETOL [Concomitant]

REACTIONS (2)
  - CONDITION AGGRAVATED [None]
  - HALLUCINATION [None]
